FAERS Safety Report 7768086-4 (Version None)
Quarter: 2011Q3

REPORT INFORMATION
  Report Type: 
  Country: None (occurrence: None)
  Receive Date: 20110922
  Receipt Date: 20110919
  Transmission Date: 20111222
  Serious: Yes (Other)
  Sender: FDA-Public Use
  Company Number: IT-PFIZER INC-2011187899

PATIENT
  Age: 74 Year
  Sex: Female

DRUGS (2)
  1. UNASYN [Suspect]
     Indication: PNEUMONIA
     Dosage: 3 DF, DAILY
     Route: 042
     Dates: start: 20110726, end: 20110728
  2. LEVOFLOXACIN [Suspect]
     Indication: PNEUMONIA
     Dosage: 500 MG, DAILY
     Route: 042
     Dates: start: 20110726, end: 20110731

REACTIONS (1)
  - TOXIC SKIN ERUPTION [None]
